FAERS Safety Report 13742251 (Version 1)
Quarter: 2017Q3

REPORT INFORMATION
  Report Type: Spontaneous
  Country: PL (occurrence: PL)
  Receive Date: 20170711
  Receipt Date: 20170711
  Transmission Date: 20171127
  Serious: Yes (Other)
  Sender: FDA-Public Use
  Company Number: PL-TEVA-784493ISR

PATIENT

DRUGS (1)
  1. BUDESONIDE. [Suspect]
     Active Substance: BUDESONIDE
     Route: 065

REACTIONS (3)
  - Drug abuse [Unknown]
  - Inappropriate prescribing [Unknown]
  - Pituitary-dependent Cushing^s syndrome [Unknown]
